FAERS Safety Report 15617603 (Version 1)
Quarter: 2018Q4

REPORT INFORMATION
  Report Type: Spontaneous
  Country: JP (occurrence: JP)
  Receive Date: 20181114
  Receipt Date: 20181114
  Transmission Date: 20190205
  Serious: Yes (Other)
  Sender: FDA-Public Use
  Company Number: JP-PFIZER INC-2018459250

PATIENT

DRUGS (1)
  1. METHOTREXATE SODIUM. [Suspect]
     Active Substance: METHOTREXATE SODIUM

REACTIONS (5)
  - Hepatic mass [Unknown]
  - Metastases to peritoneum [Unknown]
  - Lymphoproliferative disorder [Unknown]
  - Pulmonary mass [Unknown]
  - Gastric mucosal lesion [Unknown]
